FAERS Safety Report 5586386-3 (Version None)
Quarter: 2008Q1

REPORT INFORMATION
  Report Type: 
  Country: None (occurrence: None)
  Receive Date: 20080110
  Receipt Date: 20080104
  Transmission Date: 20080703
  Serious: Yes (Death)
  Sender: FDA-Public Use
  Company Number: FR-BAYER-200810323GPV

PATIENT
  Age: 74 Year
  Sex: Male

DRUGS (5)
  1. IZILOX [Suspect]
     Indication: HEADACHE
     Route: 048
     Dates: start: 20071205, end: 20071210
  2. TOPLEXIL [GUAIFENESIN,OXOMEMAZINE,PARACETAMOL,SODIUM BENZOATE] [Suspect]
     Indication: HEADACHE
     Route: 048
     Dates: start: 20071203, end: 20071205
  3. AMOXICILLIN [Concomitant]
     Indication: HEADACHE
     Route: 065
     Dates: start: 20070101, end: 20070101
  4. CARBOCYSTEIN [Concomitant]
     Indication: HEADACHE
     Route: 065
     Dates: start: 20070101, end: 20070101
  5. PARACETAMOL [Concomitant]
     Indication: HEADACHE
     Route: 065
     Dates: start: 20070101, end: 20070101

REACTIONS (1)
  - SUDDEN DEATH [None]
